FAERS Safety Report 23284707 (Version 2)
Quarter: 2023Q4

REPORT INFORMATION
  Report Type: Spontaneous
  Country: CN (occurrence: CN)
  Receive Date: 20231211
  Receipt Date: 20231212
  Transmission Date: 20240110
  Serious: Yes (Other)
  Sender: FDA-Public Use
  Company Number: CN-NAPPMUNDI-GBR-2023-0112813

PATIENT
  Age: 66 Year
  Sex: Male

DRUGS (2)
  1. MORPHINE SULFATE [Suspect]
     Active Substance: MORPHINE SULFATE
     Indication: Analgesic therapy
     Dosage: 30 MILLIGRAM, Q12H
     Route: 048
     Dates: start: 20231112, end: 20231113
  2. MORPHINE SULFATE [Suspect]
     Active Substance: MORPHINE SULFATE
     Dosage: REDUCED DOSE
     Route: 048
     Dates: start: 202311

REACTIONS (4)
  - Eyelid function disorder [Recovering/Resolving]
  - Cognitive disorder [Recovering/Resolving]
  - Slow response to stimuli [Recovering/Resolving]
  - Lethargy [Recovering/Resolving]

NARRATIVE: CASE EVENT DATE: 20231113
